FAERS Safety Report 5625147-3 (Version None)
Quarter: 2008Q1

REPORT INFORMATION
  Report Type: 
  Country: None (occurrence: None)
  Receive Date: 20080213
  Receipt Date: 20080205
  Transmission Date: 20080703
  Serious: Yes (Hospitalization)
  Sender: FDA-Public Use
  Company Number: PL-BOEHRINGER INGELHEIM GMBH, GERMANY-2008-AP-00020AP

PATIENT
  Sex: Male
  Weight: 56 kg

DRUGS (3)
  1. SPIRIVA [Suspect]
     Indication: CHRONIC OBSTRUCTIVE PULMONARY DISEASE
     Dosage: 18MCG
     Dates: start: 20071123, end: 20071210
  2. ALVESCO [Concomitant]
     Indication: CHRONIC OBSTRUCTIVE PULMONARY DISEASE
     Dates: start: 20071123, end: 20071211
  3. EUPHYLLIN LONG 0,3 [Concomitant]
     Indication: CHRONIC OBSTRUCTIVE PULMONARY DISEASE
     Dates: start: 20060101

REACTIONS (1)
  - HAEMOPTYSIS [None]
